FAERS Safety Report 7996838-4 (Version None)
Quarter: 2011Q4

REPORT INFORMATION
  Report Type: 
  Country: None (occurrence: None)
  Receive Date: 20111221
  Receipt Date: 20111214
  Transmission Date: 20120403
  Serious: Yes (Other)
  Sender: FDA-Public Use
  Company Number: US-AMGEN-USASP2011066548

PATIENT
  Age: 37 Year
  Sex: Female

DRUGS (11)
  1. COMPAZINE [Concomitant]
  2. CITALOPRAM [Concomitant]
  3. FASLODEX [Concomitant]
  4. CALCIUM [Concomitant]
  5. OXYCONTIN [Concomitant]
  6. SENNA [Concomitant]
  7. ZOFRAN [Concomitant]
  8. ATIVAN [Concomitant]
  9. MIRALAX [Concomitant]
  10. XGEVA [Suspect]
     Indication: METASTASES TO BONE
     Dosage: 120 MG, UNK
     Dates: start: 20111114
  11. AMBIEN [Concomitant]

REACTIONS (3)
  - FEELING ABNORMAL [None]
  - RESPIRATORY DISTRESS [None]
  - DYSPNOEA [None]
